FAERS Safety Report 23405114 (Version 1)
Quarter: 2024Q1

REPORT INFORMATION
  Report Type: Spontaneous
  Country: FR (occurrence: FR)
  Receive Date: 20240116
  Receipt Date: 20240116
  Transmission Date: 20240409
  Serious: Yes (Life-Threatening, Hospitalization, Disabling, Other)
  Sender: FDA-Public Use
  Company Number: None

PATIENT
  Age: 25 Year
  Sex: Male

DRUGS (3)
  1. IMATINIB [Suspect]
     Active Substance: IMATINIB
     Indication: Product used for unknown indication
     Dosage: UNK
     Route: 065
  2. STAMARIL [Suspect]
     Active Substance: YELLOW FEVER VIRUS STRAIN 17D-204 LIVE ANTIGEN
     Indication: Yellow fever immunisation
     Dosage: 1 DOSAGE FORM
     Route: 058
     Dates: start: 20180312, end: 20180312
  3. VAQTA [Suspect]
     Active Substance: HEPATITIS A VIRUS STRAIN CR 326F ANTIGEN (FORMALDEHYDE INACTIVATED)
     Indication: Hepatitis A immunisation
     Dosage: 1 DOSAGE FORM
     Route: 030
     Dates: start: 20180312, end: 20180312

REACTIONS (43)
  - Emotional disorder [Not Recovered/Not Resolved]
  - Encephalitis [Unknown]
  - Meningitis [Unknown]
  - Multiple organ dysfunction syndrome [Unknown]
  - Septic shock [Recovering/Resolving]
  - Shock [Unknown]
  - Toxic shock syndrome [Recovering/Resolving]
  - Sleep apnoea syndrome [Unknown]
  - Pneumonitis aspiration [Recovered/Resolved]
  - Cardiomyopathy [Unknown]
  - Acquired diaphragmatic eventration [Unknown]
  - Quadriparesis [Unknown]
  - Chronic eosinophilic leukaemia [Unknown]
  - Deep vein thrombosis [Unknown]
  - Pneumonia [Unknown]
  - Thrombocytopenia [Unknown]
  - Ascites [Unknown]
  - Brain oedema [Unknown]
  - Gamma-glutamyltransferase increased [Unknown]
  - Loss of personal independence in daily activities [Unknown]
  - Oral hyperaesthesia [Unknown]
  - Pallor [Unknown]
  - Splenomegaly [Unknown]
  - Wallerian degeneration [Unknown]
  - Sinusitis [Unknown]
  - Tic [Unknown]
  - Salivary hypersecretion [Unknown]
  - Bacterial test positive [Unknown]
  - Hypernatraemia [Unknown]
  - Acquired gene mutation [Unknown]
  - General physical health deterioration [Unknown]
  - Autonomic nervous system imbalance [Unknown]
  - Ill-defined disorder [Unknown]
  - Lower respiratory tract congestion [Unknown]
  - Stress [Unknown]
  - Anxiety [Unknown]
  - Depression [Unknown]
  - Normochromic anaemia [Unknown]
  - Memory impairment [Unknown]
  - Weight decreased [Unknown]
  - Anaemia macrocytic [Unknown]
  - Liver function test increased [Unknown]
  - Asthenia [Unknown]

NARRATIVE: CASE EVENT DATE: 20180101
